FAERS Safety Report 9311464 (Version 1)
Quarter: 2013Q2

REPORT INFORMATION
  Report Type: Spontaneous
  Country: US (occurrence: US)
  Receive Date: 20130528
  Receipt Date: 20130528
  Transmission Date: 20140414
  Serious: Yes (Hospitalization)
  Sender: FDA-Public Use
  Company Number: US-SANOFI-AVENTIS-2013SA053129

PATIENT
  Age: 66 Year
  Sex: Male

DRUGS (2)
  1. APIDRA [Suspect]
     Indication: TYPE 2 DIABETES MELLITUS
     Dosage: DOSE: 100 UNITS/ML DOSE:100 UNIT(S)
  2. HUMALOG [Concomitant]
     Dates: start: 20130517

REACTIONS (3)
  - Skin ulcer [Recovered/Resolved]
  - Osteomyelitis [Recovered/Resolved]
  - Blood glucose increased [Recovered/Resolved]
